FAERS Safety Report 5723753-9 (Version None)
Quarter: 2008Q2

REPORT INFORMATION
  Report Type: 
  Country: None (occurrence: None)
  Receive Date: 20080430
  Receipt Date: 20080425
  Transmission Date: 20081010
  Serious: Yes (Hospitalization)
  Sender: FDA-Public Use
  Company Number: DE-JNJFOC-20080405082

PATIENT
  Sex: Female

DRUGS (1)
  1. CONCERTA [Suspect]
     Indication: DRUG USE FOR UNKNOWN INDICATION
     Route: 048

REACTIONS (7)
  - ASTHENIA [None]
  - DEPRESSION [None]
  - INTENTIONAL OVERDOSE [None]
  - MYDRIASIS [None]
  - PALPITATIONS [None]
  - SOMNOLENCE [None]
  - SUICIDE ATTEMPT [None]
